FAERS Safety Report 5683487-6 (Version None)
Quarter: 2008Q1

REPORT INFORMATION
  Report Type: 
  Country: None (occurrence: None)
  Receive Date: 20080326
  Receipt Date: 20080312
  Transmission Date: 20080703
  Serious: Yes (Hospitalization)
  Sender: FDA-Public Use
  Company Number: 231161J07USA

PATIENT
  Age: 42 Year
  Sex: Male

DRUGS (9)
  1. REBIF [Suspect]
     Indication: MULTIPLE SCLEROSIS
     Dosage: 44 MCG, 3 IN 1 WEEKS, SUBCUTANEOUS
     Route: 058
     Dates: start: 20070713, end: 20070917
  2. REBIF [Suspect]
     Indication: MULTIPLE SCLEROSIS
     Dosage: 44 MCG, 3 IN 1 WEEKS, SUBCUTANEOUS
     Route: 058
     Dates: start: 20071210, end: 20071210
  3. REBIF [Suspect]
     Indication: MULTIPLE SCLEROSIS
     Dosage: 44 MCG, 3 IN 1 WEEKS, SUBCUTANEOUS
     Route: 058
     Dates: start: 20080101
  4. SYNTHROID [Concomitant]
  5. LISINOPRIL [Concomitant]
  6. CAPTOPRESS (CAPTOPRIL) [Concomitant]
  7. GABAPENTIN [Concomitant]
  8. HYDROCODONE (HYDROCODONE) [Concomitant]
  9. FLEXERIL [Concomitant]

REACTIONS (9)
  - ALCOHOLISM [None]
  - ASTHENIA [None]
  - COMA [None]
  - CONDITION AGGRAVATED [None]
  - DEPRESSION [None]
  - ENTERITIS INFECTIOUS [None]
  - HYPERTENSION [None]
  - INFLUENZA LIKE ILLNESS [None]
  - PANCREATITIS ACUTE [None]
